FAERS Safety Report 7869859-X (Version None)
Quarter: 2011Q4

REPORT INFORMATION
  Report Type: 
  Country: None (occurrence: None)
  Receive Date: 20111028
  Receipt Date: 20110110
  Transmission Date: 20120403
  Serious: No
  Sender: FDA-Public Use
  Company Number: US-AMGEN-USASP2011001616

PATIENT
  Age: 40 Year
  Sex: Female

DRUGS (6)
  1. PLAQUENIL [Concomitant]
     Dosage: 200 MG, UNK
  2. FOLIC ACID [Concomitant]
     Dosage: 1 MG, UNK
  3. DICLOFENAC POTASSIUM [Concomitant]
     Dosage: 25 MG, UNK
  4. ENBREL [Suspect]
     Indication: PRODUCT USED FOR UNKNOWN INDICATION
     Dosage: 50 MG, QWK
  5. NAPRELAN [Concomitant]
     Dosage: 375 MG, UNK
  6. METHOTREXATE [Concomitant]
     Dosage: 2.5 MG, UNK

REACTIONS (4)
  - VERTIGO [None]
  - OROPHARYNGEAL PAIN [None]
  - LOCALISED INFECTION [None]
  - COUGH [None]
